FAERS Safety Report 10090119 (Version 2)
Quarter: 2014Q2

REPORT INFORMATION
  Report Type: Spontaneous
  Country: US (occurrence: US)
  Receive Date: 20140421
  Receipt Date: 20140429
  Transmission Date: 20141212
  Serious: No
  Sender: FDA-Public Use
  Company Number: US-PFIZER INC-2014107121

PATIENT
  Sex: Female

DRUGS (2)
  1. ZYVOX [Suspect]
     Indication: EYE INFECTION
     Dosage: UNK
     Route: 048
  2. ZYVOX [Suspect]
     Indication: ENTEROCOCCAL INFECTION

REACTIONS (1)
  - Nausea [Unknown]
